FAERS Safety Report 5610897-5 (Version None)
Quarter: 2008Q1

REPORT INFORMATION
  Report Type: 
  Country: None (occurrence: None)
  Receive Date: 20080201
  Receipt Date: 20080123
  Transmission Date: 20080703
  Serious: Yes (Hospitalization)
  Sender: FDA-Public Use
  Company Number: FR-AVENTIS-200810359FR

PATIENT
  Age: 73 Year
  Sex: Male

DRUGS (13)
  1. LASILIX                            /00032601/ [Suspect]
     Indication: HYPERTENSION
     Route: 048
  2. CORDARONE [Suspect]
     Indication: ATRIAL FIBRILLATION
     Route: 048
  3. DIGITALINE NATIVELLE [Suspect]
     Indication: VENTRICULAR ARRHYTHMIA
     Route: 048
     Dates: end: 20071016
  4. COLCHIMAX (FRANCE) [Concomitant]
     Indication: GOUT
     Route: 048
     Dates: end: 20071016
  5. PREVISCAN                          /00789001/ [Concomitant]
     Indication: ARRHYTHMIA
     Route: 048
     Dates: end: 20071016
  6. COZAAR [Concomitant]
     Indication: HYPERTENSION
     Route: 048
     Dates: end: 20071016
  7. ALDACTONE [Concomitant]
     Indication: HYPERTENSION
     Route: 048
     Dates: end: 20071016
  8. FLODIL LP 5 MG [Concomitant]
     Indication: HYPERTENSION
     Route: 048
     Dates: end: 20071016
  9. SPASFON                            /00934601/ [Concomitant]
     Dates: end: 20071016
  10. FLECTOR [Concomitant]
     Route: 061
     Dates: end: 20071016
  11. XATRAL                             /00975302/ [Concomitant]
     Route: 048
  12. VASTEN                             /00880402/ [Concomitant]
     Route: 048
  13. FLECTOR [Concomitant]
     Dates: start: 20070928, end: 20071016

REACTIONS (9)
  - ABDOMINAL PAIN [None]
  - ANOREXIA [None]
  - CARDIOACTIVE DRUG LEVEL INCREASED [None]
  - DRUG INTERACTION [None]
  - FLATULENCE [None]
  - HEPATIC CIRRHOSIS [None]
  - HEPATOMEGALY [None]
  - INTERNATIONAL NORMALISED RATIO INCREASED [None]
  - VOMITING [None]
